FAERS Safety Report 16925580 (Version 1)
Quarter: 2019Q4

REPORT INFORMATION
  Report Type: Report from Study
  Country: US (occurrence: US)
  Receive Date: 20191016
  Receipt Date: 20191016
  Transmission Date: 20200122
  Serious: Yes (Hospitalization, Other)
  Sender: FDA-Public Use
  Company Number: US-MALLINCKRODT-T201904354

PATIENT
  Age: 69 Year
  Sex: Female

DRUGS (2)
  1. REPOSITORY CORTICOTROPIN INJECTION [Suspect]
     Active Substance: CORTICOTROPIN
     Dosage: 80 UNITS/1 ML, 2 TIMES PER WEEK, (TUESDAY AND FRIDAY)
     Route: 058
     Dates: end: 20191008
  2. REPOSITORY CORTICOTROPIN INJECTION [Suspect]
     Active Substance: CORTICOTROPIN
     Indication: RHEUMATOID ARTHRITIS
     Dosage: 80 UNITS / 1 ML, 2 TIMES PER WEEK, TUESDAY AND FRIDAY
     Route: 058
     Dates: start: 20180911

REACTIONS (8)
  - Bronchitis [Recovered/Resolved]
  - Sensitivity to weather change [Not Recovered/Not Resolved]
  - Pneumonia [Recovered/Resolved]
  - Needle issue [Unknown]
  - Hyperhidrosis [Unknown]
  - Drug ineffective [Not Recovered/Not Resolved]
  - Haemorrhoidal haemorrhage [Recovering/Resolving]
  - Vein disorder [Not Recovered/Not Resolved]

NARRATIVE: CASE EVENT DATE: 201907
